FAERS Safety Report 8383288-4 (Version None)
Quarter: 2012Q2

REPORT INFORMATION
  Report Type: 
  Country: None (occurrence: None)
  Receive Date: 20120522
  Receipt Date: 20120507
  Transmission Date: 20120825
  Serious: Yes (Hospitalization)
  Sender: FDA-Public Use
  Company Number: TPA2012A02683

PATIENT
  Sex: Female

DRUGS (1)
  1. EDARBYCLOR [Suspect]
     Dosage: 2 IN 1 D, 40/12.5 MG, PER ORAL
     Route: 048

REACTIONS (1)
  - HYPONATRAEMIA [None]
